FAERS Safety Report 6856477-5 (Version None)
Quarter: 2010Q3

REPORT INFORMATION
  Report Type: 
  Country: None (occurrence: None)
  Receive Date: 20100716
  Receipt Date: 20100716
  Transmission Date: 20110219
  Serious: No
  Sender: FDA-Public Use
  Company Number: None

PATIENT
  Age: 60 Year
  Sex: Male
  Weight: 75.3 kg

DRUGS (2)
  1. TRIHEXYPHENIDYL HCL [Suspect]
     Indication: MUSCLE SPASMS
     Dosage: 1/2 TAB BID PO
     Route: 048
     Dates: start: 20100122, end: 20100219
  2. TRIHEXYPHENIDYL HCL [Suspect]
     Indication: TREMOR
     Dosage: 1/2 TAB BID PO
     Route: 048
     Dates: start: 20100122, end: 20100219

REACTIONS (1)
  - HYPERHIDROSIS [None]
